FAERS Safety Report 4423840-1 (Version None)
Quarter: 2004Q3

REPORT INFORMATION
  Report Type: 
  Country: None (occurrence: None)
  Receive Date: 20040714
  Receipt Date: 20030522
  Transmission Date: 20050211
  Serious: No
  Sender: FDA-Public Use
  Company Number: 200314849US

PATIENT
  Sex: Male

DRUGS (3)
  1. TAXOTERE [Suspect]
  2. CARBOPLATIN [Concomitant]
  3. TRASTUZUMAB [Concomitant]

REACTIONS (1)
  - NONSPECIFIC REACTION [None]
